FAERS Safety Report 6330344-8 (Version None)
Quarter: 2009Q3

REPORT INFORMATION
  Report Type: 
  Country: None (occurrence: None)
  Receive Date: 20090827
  Receipt Date: 20070713
  Transmission Date: 20100115
  Serious: Yes (Hospitalization, Other)
  Sender: FDA-Public Use
  Company Number: US-ASTRAZENECA-2006UW07077

PATIENT
  Age: 455 Month
  Sex: Female
  Weight: 90.7 kg

DRUGS (26)
  1. SEROQUEL [Suspect]
     Indication: DEPRESSION
     Route: 048
     Dates: start: 19970101, end: 20050101
  2. SEROQUEL [Suspect]
     Indication: SLEEP DISORDER
     Route: 048
     Dates: start: 19970101, end: 20050101
  3. SEROQUEL [Suspect]
     Route: 048
     Dates: start: 20021121
  4. SEROQUEL [Suspect]
     Route: 048
     Dates: start: 20021121
  5. SEROQUEL [Suspect]
     Route: 048
     Dates: start: 20030818
  6. SEROQUEL [Suspect]
     Route: 048
     Dates: start: 20030818
  7. SEROQUEL [Suspect]
     Route: 048
     Dates: start: 20040304
  8. SEROQUEL [Suspect]
     Route: 048
     Dates: start: 20040304
  9. ZYPREXA [Suspect]
     Indication: DEPRESSION
     Dates: start: 19990601
  10. ZYPREXA [Suspect]
     Indication: SLEEP DISORDER
     Dates: start: 19990601
  11. RISPERDAL [Suspect]
     Indication: DEPRESSION
     Dates: start: 20010101
  12. RISPERDAL [Suspect]
     Indication: SLEEP DISORDER
     Dates: start: 20010101
  13. METHADONE HCL [Concomitant]
     Dates: start: 20031113
  14. PROZAC [Concomitant]
     Dates: start: 20041119
  15. COUMADIN [Concomitant]
     Dates: start: 20040514
  16. ZELNORM [Concomitant]
     Dates: start: 20041119
  17. PHENERGAN [Concomitant]
     Dates: start: 20041119
  18. ADVAIR HFA [Concomitant]
     Dates: start: 20041119
  19. METOPROLOL [Concomitant]
     Dates: start: 20041119
  20. COMBIVENT [Concomitant]
     Dates: start: 20041119
  21. NEURONTIN [Concomitant]
     Dates: start: 20041119
  22. NEXIUM [Concomitant]
     Dates: start: 20041119
  23. ZANAFLEX [Concomitant]
     Dates: start: 20041119
  24. PERCOCET [Concomitant]
     Dates: start: 20031113
  25. PROCRIT [Concomitant]
     Dates: start: 20040514
  26. TETRACYCLINE [Concomitant]
     Dates: start: 20000228

REACTIONS (5)
  - DIABETES MELLITUS [None]
  - INSULIN-REQUIRING TYPE 2 DIABETES MELLITUS [None]
  - PANCREATITIS [None]
  - PANCREATITIS RELAPSING [None]
  - TYPE 1 DIABETES MELLITUS [None]
